FAERS Safety Report 7843545-4 (Version None)
Quarter: 2011Q4

REPORT INFORMATION
  Report Type: 
  Country: None (occurrence: None)
  Receive Date: 20111014
  Receipt Date: 20111006
  Transmission Date: 20120403
  Serious: No
  Sender: FDA-Public Use
  Company Number: 2011SP045903

PATIENT
  Age: 46 Year
  Sex: Female

DRUGS (3)
  1. PROPOFOL [Concomitant]
  2. ESMERON (ROCURONIUM BROMIDE /01245702/) [Suspect]
     Indication: ANAESTHESIA PROCEDURE
     Dosage: IV
     Route: 042
     Dates: start: 20110920, end: 20110920
  3. LIDOCAINE [Concomitant]

REACTIONS (4)
  - INFUSION SITE HAEMATOMA [None]
  - DEVICE DISLOCATION [None]
  - DYSKINESIA [None]
  - HYPOAESTHESIA [None]
